FAERS Safety Report 9246067 (Version 1)
Quarter: 2013Q2

REPORT INFORMATION
  Report Type: Spontaneous
  Country: US (occurrence: US)
  Receive Date: 20130422
  Receipt Date: 20130422
  Transmission Date: 20140414
  Serious: No
  Sender: FDA-Public Use
  Company Number: US-PFIZER INC-2013120790

PATIENT
  Sex: 0

DRUGS (4)
  1. TOVIAZ [Suspect]
     Dosage: UNK
  2. PREVACID [Suspect]
     Dosage: UNK
  3. FEMARA [Suspect]
     Dosage: UNK
  4. FASLODEX [Suspect]
     Dosage: UNK

REACTIONS (4)
  - Eructation [Unknown]
  - Diarrhoea [Unknown]
  - Constipation [Unknown]
  - Gastrooesophageal reflux disease [Unknown]
